FAERS Safety Report 15628536 (Version 1)
Quarter: 2018Q4

REPORT INFORMATION
  Report Type: Other
  Country: CA (occurrence: CA)
  Receive Date: 20181116
  Receipt Date: 20181116
  Transmission Date: 20190205
  Serious: Yes (Death, Other)
  Sender: FDA-Public Use
  Company Number: CA-ASTELLAS-2018US049110

PATIENT
  Age: 63 Year
  Sex: Male

DRUGS (3)
  1. MYCOPHENOLATE MOFETIL. [Suspect]
     Active Substance: MYCOPHENOLATE MOFETIL
     Indication: STEM CELL TRANSPLANT
     Dosage: UNK UNK, UNKNOWN FREQ.
     Route: 065
  2. TACROLIMUS. [Suspect]
     Active Substance: TACROLIMUS
     Indication: STEM CELL TRANSPLANT
     Dosage: UNK UNK, UNKNOWN FREQ.
     Route: 065
  3. PREDNISONE. [Suspect]
     Active Substance: PREDNISONE
     Indication: STEM CELL TRANSPLANT
     Dosage: UNK UNK, UNKNOWN FREQ.
     Route: 065

REACTIONS (10)
  - Graft versus host disease in lung [Fatal]
  - Klebsiella infection [Fatal]
  - Graft versus host disease in skin [Fatal]
  - Bronchiectasis [Fatal]
  - Aspergillus infection [Fatal]
  - Graft versus host disease [Fatal]
  - Cytomegalovirus infection [Fatal]
  - Respiratory failure [Fatal]
  - Pleural effusion [Fatal]
  - Mycobacterial infection [Fatal]
